FAERS Safety Report 9542383 (Version 1)
Quarter: 2013Q3

REPORT INFORMATION
  Report Type: Spontaneous
  Country: US (occurrence: US)
  Receive Date: 20130923
  Receipt Date: 20130923
  Transmission Date: 20140515
  Serious: No
  Sender: FDA-Public Use
  Company Number: US-BAYER-2013-114558

PATIENT
  Age: 65 Year
  Sex: Female

DRUGS (2)
  1. ALEVE CAPLET [Suspect]
  2. ADVIL [Concomitant]

REACTIONS (2)
  - Nervousness [None]
  - Anxiety [None]
